FAERS Safety Report 17292072 (Version 1)
Quarter: 2020Q1

REPORT INFORMATION
  Report Type: Spontaneous
  Country: RU (occurrence: RU)
  Receive Date: 20200121
  Receipt Date: 20200121
  Transmission Date: 20200409
  Serious: Yes (Other)
  Sender: FDA-Public Use
  Company Number: RU-BAYER-2019-222690

PATIENT
  Age: 58 Year
  Sex: Female

DRUGS (3)
  1. MIRENA [Suspect]
     Active Substance: LEVONORGESTREL
     Indication: PREVENTION OF ENDOMETRIAL HYPERPLASIA
  2. DIVIGEL [Concomitant]
     Active Substance: ESTRADIOL
     Route: 061
  3. MIRENA [Suspect]
     Active Substance: LEVONORGESTREL
     Indication: PREVENTION OF ENDOMETRIAL HYPERPLASIA
     Dosage: 20 MCG/24HR, CONT
     Route: 015
     Dates: start: 2017

REACTIONS (6)
  - Device physical property issue [None]
  - Genital haemorrhage [None]
  - Device use issue [None]
  - Device malfunction [None]
  - Off label use of device [None]
  - Device expulsion [Recovered/Resolved]
